FAERS Safety Report 22090079 (Version 1)
Quarter: 2023Q1

REPORT INFORMATION
  Report Type: Spontaneous
  Country: US (occurrence: None)
  Receive Date: 20230313
  Receipt Date: 20230313
  Transmission Date: 20230418
  Serious: Yes (Life-Threatening, Hospitalization, Other)
  Sender: FDA-Public Use
  Company Number: None

PATIENT
  Age: 57 Year
  Sex: Female

DRUGS (1)
  1. ABECMA [Suspect]
     Active Substance: IDECABTAGENE VICLEUCEL

REACTIONS (24)
  - Cytokine release syndrome [None]
  - Immune effector cell-associated neurotoxicity syndrome [None]
  - Blood pressure systolic increased [None]
  - Echocardiogram abnormal [None]
  - Illiteracy [None]
  - Chills [None]
  - Atrial fibrillation [None]
  - Nausea [None]
  - Disorientation [None]
  - Slow response to stimuli [None]
  - Sleep disorder [None]
  - Neurotoxicity [None]
  - Multiple organ dysfunction syndrome [None]
  - Lethargy [None]
  - Unresponsive to stimuli [None]
  - Epilepsy [None]
  - Somnolence [None]
  - Seizure [None]
  - Depressed level of consciousness [None]
  - Grunting [None]
  - Bacteraemia [None]
  - Bacteraemia [None]
  - Acute kidney injury [None]
  - Renal tubular necrosis [None]

NARRATIVE: CASE EVENT DATE: 20221215
